FAERS Safety Report 4391101-5 (Version None)
Quarter: 2004Q2

REPORT INFORMATION
  Report Type: 
  Country: None (occurrence: None)
  Receive Date: 20040621
  Receipt Date: 20040202
  Transmission Date: 20050107
  Serious: Yes (Other)
  Sender: FDA-Public Use
  Company Number: USA-2003-0009521

PATIENT
  Age: 49 Year
  Sex: Male
  Weight: 83.9 kg

DRUGS (2)
  1. OXYCONTIN [Suspect]
     Indication: PAIN
     Dosage: 20 MG, BID, ORAL
     Route: 048
     Dates: start: 20030411, end: 20030701
  2. PERCOCET [Concomitant]

REACTIONS (3)
  - DRUG ABUSER [None]
  - INADEQUATE ANALGESIA [None]
  - OVERDOSE [None]
